FAERS Safety Report 16414438 (Version 1)
Quarter: 2019Q2

REPORT INFORMATION
  Report Type: Spontaneous
  Country: US (occurrence: US)
  Receive Date: 20190503
  Receipt Date: 20190503
  Transmission Date: 20190711
  Serious: No
  Sender: FDA-Public Use
  Company Number: None

PATIENT
  Age: 62 Year
  Sex: Female

DRUGS (1)
  1. REPATHA [Suspect]
     Active Substance: EVOLOCUMAB
     Dates: start: 20190315

REACTIONS (6)
  - Arthritis [None]
  - Musculoskeletal stiffness [None]
  - Arthralgia [None]
  - Pain [None]
  - Upper-airway cough syndrome [None]
  - Oropharyngeal pain [None]

NARRATIVE: CASE EVENT DATE: 20190501
